FAERS Safety Report 18337639 (Version 1)
Quarter: 2020Q4

REPORT INFORMATION
  Report Type: Spontaneous
  Country: IT (occurrence: IT)
  Receive Date: 20201002
  Receipt Date: 20201002
  Transmission Date: 20210113
  Serious: Yes (Hospitalization)
  Sender: FDA-Public Use
  Company Number: IT-AMGEN-ITASP2020159116

PATIENT
  Age: 67 Year
  Sex: Male

DRUGS (6)
  1. PRADAXA [Suspect]
     Active Substance: DABIGATRAN ETEXILATE MESYLATE
     Indication: DRUG ABUSE
     Dosage: 4 DF
     Route: 048
     Dates: start: 20200826, end: 20200826
  2. TRIAZOLAM. [Suspect]
     Active Substance: TRIAZOLAM
     Indication: DRUG ABUSE
     Dosage: 20 DF
     Route: 048
     Dates: start: 20200826, end: 20200826
  3. IVABRADINE [Suspect]
     Active Substance: IVABRADINE
     Indication: DRUG ABUSE
     Dosage: 41 DF
     Route: 048
     Dates: start: 20200826, end: 20200826
  4. RAMIPRIL. [Suspect]
     Active Substance: RAMIPRIL
     Indication: DRUG ABUSE
     Dosage: 21 DF
     Route: 048
  5. BISOPROLOL FUMARATE. [Suspect]
     Active Substance: BISOPROLOL FUMARATE
     Indication: DRUG ABUSE
     Dosage: 42 DF
     Route: 065
     Dates: start: 20200826, end: 20200826
  6. AMIODARONE HYDROCHLORIDE. [Suspect]
     Active Substance: AMIODARONE HYDROCHLORIDE
     Indication: DRUG ABUSE
     Dosage: UNK
     Route: 065

REACTIONS (3)
  - Speech disorder [Unknown]
  - Drug abuse [Unknown]
  - Ventricular extrasystoles [Unknown]

NARRATIVE: CASE EVENT DATE: 20200826
